FAERS Safety Report 10371844 (Version 4)
Quarter: 2015Q1

REPORT INFORMATION
  Report Type: Spontaneous
  Country: US (occurrence: US)
  Receive Date: 20140808
  Receipt Date: 20150121
  Transmission Date: 20150720
  Serious: Yes (Other)
  Sender: FDA-Public Use
  Company Number: US-GLAXOSMITHKLINE-A1083594A

PATIENT
  Age: 66 Year
  Sex: Female

DRUGS (9)
  1. ALLEGRA [Concomitant]
     Active Substance: FEXOFENADINE HYDROCHLORIDE
  2. ALLERGY SHOT [Concomitant]
     Active Substance: UNSPECIFIED INGREDIENT
  3. NEBULIZER [Concomitant]
     Active Substance: UNSPECIFIED INGREDIENT
  4. NASACORT [Concomitant]
     Active Substance: TRIAMCINOLONE ACETONIDE
  5. ADVAIR HFA [Suspect]
     Active Substance: FLUTICASONE PROPIONATE\SALMETEROL XINAFOATE
     Dates: start: 2007
  6. ADVAIR HFA [Suspect]
     Active Substance: FLUTICASONE PROPIONATE\SALMETEROL XINAFOATE
     Indication: ASTHMA
     Dosage: 500/50 MCG. 1 PUFF TWICE A DAY.
     Route: 055
     Dates: start: 2007
  7. NEXIUM [Concomitant]
     Active Substance: ESOMEPRAZOLE MAGNESIUM
  8. ALBUTEROL. [Concomitant]
     Active Substance: ALBUTEROL
  9. SINGULAIR [Concomitant]
     Active Substance: MONTELUKAST SODIUM

REACTIONS (8)
  - Inhalation therapy [Not Recovered/Not Resolved]
  - Asthma [Not Recovered/Not Resolved]
  - Sinusitis [Unknown]
  - Dyspnoea [Unknown]
  - Sinus operation [Unknown]
  - Product quality issue [Unknown]
  - Bronchitis [Unknown]
  - Respiratory therapy [Not Recovered/Not Resolved]

NARRATIVE: CASE EVENT DATE: 201403
